FAERS Safety Report 21665982 (Version 1)
Quarter: 2022Q4

REPORT INFORMATION
  Report Type: Report from Study
  Country: IT (occurrence: IT)
  Receive Date: 20221201
  Receipt Date: 20221201
  Transmission Date: 20230113
  Serious: Yes (Death, Life-Threatening, Hospitalization)
  Sender: FDA-Public Use
  Company Number: IT-EMA-DD-20221111-225467-202043

PATIENT
  Age: 53 Year
  Sex: Male
  Weight: 115 kg

DRUGS (7)
  1. LENALIDOMIDE [Suspect]
     Active Substance: LENALIDOMIDE
     Indication: Diffuse large B-cell lymphoma
     Dosage: 25 MILLIGRAM DAILY; 25 MILLIGRAM, QD, DURATION : 20 DAYS
     Dates: start: 20220623, end: 20220712
  2. TAFASITAMAB [Suspect]
     Active Substance: TAFASITAMAB
     Indication: Diffuse large B-cell lymphoma
     Dosage: 1600 MILLIGRAM (D1, D4, D8, D15, D22), INCMOR00208 (TAFASITAMAB), DURATION : 21 DAYS
     Dates: start: 20220623, end: 20220713
  3. ACYCLOVIR [Concomitant]
     Active Substance: ACYCLOVIR
     Indication: Prophylaxis
     Dosage: 800 MILLIGRAM DAILY; 800 MILLIGRAM, QD
     Dates: start: 20220608
  4. ALLOPURINOL [Concomitant]
     Active Substance: ALLOPURINOL
     Indication: Prophylaxis
     Dosage: 300 MILLIGRAM DAILY; 300 MILLIGRAM, QD
     Dates: start: 20220608
  5. LEVOFLOXACIN [Concomitant]
     Active Substance: LEVOFLOXACIN
     Indication: Product used for unknown indication
     Dosage: 500 MILLIGRAM DAILY; 500 MILLIGRAM, QD
     Dates: start: 20220706
  6. BACTRIM [Concomitant]
     Active Substance: SULFAMETHOXAZOLE\TRIMETHOPRIM
     Indication: Prophylaxis
     Dosage: 960 MILLIGRAM, QOD
     Dates: start: 20220608
  7. LANSOPRAZOLE [Concomitant]
     Active Substance: LANSOPRAZOLE
     Indication: Prophylaxis
     Dosage: 30 MILLIGRAM DAILY; 30 MILLIGRAM, QD
     Dates: start: 20220608

REACTIONS (2)
  - Disease progression [Fatal]
  - Paraesthesia oral [Recovering/Resolving]

NARRATIVE: CASE EVENT DATE: 20220623
